FAERS Safety Report 4286899-0 (Version None)
Quarter: 2004Q1

REPORT INFORMATION
  Report Type: 
  Country: None (occurrence: None)
  Receive Date: 20040204
  Receipt Date: 20031120
  Transmission Date: 20041129
  Serious: Yes (Hospitalization)
  Sender: FDA-Public Use
  Company Number: 2003AP04030

PATIENT
  Age: 78 Year
  Sex: Male

DRUGS (11)
  1. IRESSA [Suspect]
     Indication: NON-SMALL CELL LUNG CANCER
     Dosage: 250 MG DAILY PO
     Route: 048
     Dates: start: 20031016, end: 20031111
  2. THEOPHYLLINE [Concomitant]
  3. MAGNESIUM OXIDE [Concomitant]
  4. SENNOSIDE [Concomitant]
  5. SALMETEROL [Concomitant]
  6. CISAPRIDE [Concomitant]
  7. FLUDIAZEPAM [Concomitant]
  8. CARBOCYSTEINE [Concomitant]
  9. METOCLOPRAMIDE [Concomitant]
  10. CEFUROXIME [Concomitant]
  11. ALGINIC ACID [Concomitant]

REACTIONS (7)
  - DEHYDRATION [None]
  - DEPRESSED LEVEL OF CONSCIOUSNESS [None]
  - DIARRHOEA [None]
  - MALIGNANT NEOPLASM PROGRESSION [None]
  - NAUSEA [None]
  - NON-SMALL CELL LUNG CANCER [None]
  - VOMITING [None]
